FAERS Safety Report 7968817-4 (Version None)
Quarter: 2011Q4

REPORT INFORMATION
  Report Type: 
  Country: None (occurrence: None)
  Receive Date: 20111209
  Receipt Date: 20111128
  Transmission Date: 20120403
  Serious: Yes (Hospitalization, Other)
  Sender: FDA-Public Use
  Company Number: PHHY2010US09835

PATIENT
  Sex: Male

DRUGS (3)
  1. EXJADE [Suspect]
     Dosage: 1000 MG, QD
     Route: 048
  2. DECADRON [Concomitant]
  3. REVLIMID [Concomitant]
     Dosage: 5 MG,DAILY

REACTIONS (3)
  - SPINAL FRACTURE [None]
  - ACCIDENT [None]
  - RASH [None]
